FAERS Safety Report 17622114 (Version 1)
Quarter: 2020Q2

REPORT INFORMATION
  Report Type: Spontaneous
  Country: US (occurrence: US)
  Receive Date: 20200402
  Receipt Date: 20200402
  Transmission Date: 20200713
  Serious: No
  Sender: FDA-Public Use
  Company Number: None

PATIENT
  Age: 62 Year
  Sex: Female

DRUGS (1)
  1. OCTREOTIDE 50MCG/ML SDV INJ [Suspect]
     Active Substance: OCTREOTIDE ACETATE
     Indication: CROHN^S DISEASE
     Dosage: ?          OTHER STRENGTH:50MCG/ML;?
     Route: 058
     Dates: start: 201306

REACTIONS (3)
  - Diarrhoea [None]
  - Therapy interrupted [None]
  - Product use issue [None]

NARRATIVE: CASE EVENT DATE: 20200402
